FAERS Safety Report 11117924 (Version 2)
Quarter: 2015Q3

REPORT INFORMATION
  Report Type: Report from Study
  Country: HK (occurrence: HK)
  Receive Date: 20150518
  Receipt Date: 20150724
  Transmission Date: 20151125
  Serious: Yes (Death, Other)
  Sender: FDA-Public Use
  Company Number: HK-ROCHE-1575287

PATIENT
  Age: 70 Year
  Sex: Female

DRUGS (7)
  1. OBINUTUZUMAB [Suspect]
     Active Substance: OBINUTUZUMAB
     Route: 042
     Dates: start: 20150320, end: 20150320
  2. CHLORAMBUCIL [Concomitant]
     Active Substance: CHLORAMBUCIL
     Indication: LYMPHOPROLIFERATIVE DISORDER
     Route: 048
     Dates: start: 20150319
  3. CHLORAMBUCIL [Concomitant]
     Active Substance: CHLORAMBUCIL
     Route: 048
     Dates: start: 20150320
  4. RITUXIMAB [Suspect]
     Active Substance: RITUXIMAB
     Indication: LYMPHOPROLIFERATIVE DISORDER
     Route: 065
     Dates: start: 2012
  5. OBINUTUZUMAB [Suspect]
     Active Substance: OBINUTUZUMAB
     Indication: LYMPHOPROLIFERATIVE DISORDER
     Route: 042
     Dates: start: 20150319, end: 20150319
  6. OBINUTUZUMAB [Suspect]
     Active Substance: OBINUTUZUMAB
     Route: 042
     Dates: start: 20150413
  7. OBINUTUZUMAB [Suspect]
     Active Substance: OBINUTUZUMAB
     Route: 042
     Dates: start: 20150423

REACTIONS (3)
  - Febrile neutropenia [Recovered/Resolved]
  - Disease recurrence [Unknown]
  - Haemorrhage intracranial [Fatal]

NARRATIVE: CASE EVENT DATE: 201409
